FAERS Safety Report 7472638-9 (Version None)
Quarter: 2011Q2

REPORT INFORMATION
  Report Type: 
  Country: None (occurrence: None)
  Receive Date: 20110511
  Receipt Date: 20110428
  Transmission Date: 20111010
  Serious: Yes (Hospitalization)
  Sender: FDA-Public Use
  Company Number: FR-JNJFOC-20110107299

PATIENT
  Sex: Female

DRUGS (12)
  1. ATORVASTATIN CALCIUM [Concomitant]
  2. HYDROCORTISONE [Concomitant]
  3. VERAPAMIL [Concomitant]
  4. CALCIUM CARBONATE W/COLECALCIFEROL [Concomitant]
  5. BECOTIDE [Concomitant]
  6. ACETAMINOPHEN AND TRAMADOL HCL [Suspect]
     Indication: PRODUCT USED FOR UNKNOWN INDICATION
     Route: 048
  7. ACETAMINOPHEN [Suspect]
     Indication: BACK PAIN
     Route: 065
  8. THEOPHYLLINE [Concomitant]
  9. LEVOTHYROXINE SODIUM [Concomitant]
  10. VENTOLIN [Concomitant]
  11. ACETAMINOPHEN W/ CODEINE [Suspect]
     Indication: PRODUCT USED FOR UNKNOWN INDICATION
     Route: 048
  12. VOLTAREN [Suspect]
     Indication: PRODUCT USED FOR UNKNOWN INDICATION
     Route: 048

REACTIONS (1)
  - CHOLESTASIS [None]
